FAERS Safety Report 7410052-2 (Version None)
Quarter: 2011Q2

REPORT INFORMATION
  Report Type: 
  Country: None (occurrence: None)
  Receive Date: 20110412
  Receipt Date: 20110331
  Transmission Date: 20111010
  Serious: Yes (Other)
  Sender: FDA-Public Use
  Company Number: PHHY2011US27082

PATIENT
  Sex: Female

DRUGS (4)
  1. TASIGNA [Suspect]
     Indication: CHRONIC MYELOID LEUKAEMIA
     Dosage: UNK
     Route: 048
     Dates: start: 20101001
  2. SPRYCEL [Concomitant]
     Dosage: UNK
     Dates: start: 20100724, end: 20101206
  3. TASIGNA [Suspect]
     Dosage: 400 MG, BID
     Route: 048
     Dates: start: 20110117
  4. TASIGNA [Suspect]
     Dosage: LOWER DOSE
     Route: 048
     Dates: start: 20101201

REACTIONS (1)
  - THROMBOCYTOPENIA [None]
